FAERS Safety Report 6580793-8 (Version None)
Quarter: 2010Q1

REPORT INFORMATION
  Report Type: 
  Country: None (occurrence: None)
  Receive Date: 20100213
  Receipt Date: 20100201
  Transmission Date: 20100710
  Serious: Yes (Other)
  Sender: FDA-Public Use
  Company Number: US-ELI_LILLY_AND_COMPANY-US201002001520

PATIENT
  Sex: Female

DRUGS (3)
  1. FORTEO [Suspect]
     Indication: OSTEOPOROSIS
     Dosage: 20 UG, DAILY (1/D)
     Route: 065
     Dates: start: 20090901
  2. RAMIPRIL [Concomitant]
  3. TOPROL-XL [Concomitant]
     Dosage: UNK, DAILY (1/D)
     Route: 065

REACTIONS (3)
  - FALL [None]
  - PAIN [None]
  - PELVIC FRACTURE [None]
